FAERS Safety Report 9696428 (Version 1)
Quarter: 2013Q4

REPORT INFORMATION
  Report Type: Spontaneous
  Country: US (occurrence: US)
  Receive Date: 20131119
  Receipt Date: 20131119
  Transmission Date: 20140711
  Serious: Yes (Hospitalization)
  Sender: FDA-Public Use
  Company Number: US-MYLANLABS-2013S1025291

PATIENT
  Age: 28 Year
  Sex: Male

DRUGS (1)
  1. LOPERAMIDE [Suspect]
     Indication: DRUG WITHDRAWAL SYNDROME
     Dosage: 400 TABLETS OF LOPERAMIDE 2MG DAILY
     Route: 065

REACTIONS (3)
  - Drug abuse [Unknown]
  - Syncope [Recovered/Resolved]
  - Ventricular tachycardia [Recovered/Resolved]
